FAERS Safety Report 4571165-6 (Version None)
Quarter: 2005Q1

REPORT INFORMATION
  Report Type: 
  Country: None (occurrence: None)
  Receive Date: 20050202
  Receipt Date: 20050113
  Transmission Date: 20050727
  Serious: Yes (Life-Threatening, Hospitalization)
  Sender: FDA-Public Use
  Company Number: JP_050105636

PATIENT
  Age: 74 Year
  Sex: Male
  Weight: 37 kg

DRUGS (6)
  1. PERMAX [Suspect]
     Indication: PARKINSON'S DISEASE
     Dosage: 150 UG DAY
     Dates: start: 20031227
  2. FAMOTIDINE [Concomitant]
  3. CARBIDOPA AND LEVODOPA [Concomitant]
  4. SYMMETREL [Concomitant]
  5. LEVOTHYROXINE SODIUM [Concomitant]
  6. SERMION           (NICERGOLINE) [Concomitant]

REACTIONS (10)
  - AORTIC VALVE INCOMPETENCE [None]
  - BLOOD CREATINE PHOSPHOKINASE INCREASED [None]
  - BLOOD PH INCREASED [None]
  - CONSTIPATION [None]
  - DECREASED APPETITE [None]
  - GASTRITIS [None]
  - HEPATIC FUNCTION ABNORMAL [None]
  - NAIL TINEA [None]
  - NEUROLEPTIC MALIGNANT SYNDROME [None]
  - PNEUMONITIS [None]
